FAERS Safety Report 5815483-X (Version None)
Quarter: 2008Q3

REPORT INFORMATION
  Report Type: 
  Country: None (occurrence: None)
  Receive Date: 20080718
  Receipt Date: 20080708
  Transmission Date: 20090109
  Serious: Yes (Disabling)
  Sender: FDA-Public Use
  Company Number: US-MERCK-0712USA02223

PATIENT
  Age: 57 Year
  Sex: Female
  Weight: 58 kg

DRUGS (6)
  1. FOSAMAX [Suspect]
     Indication: OSTEOPENIA
     Route: 048
     Dates: start: 20011101
  2. FOSAMAX [Suspect]
     Indication: OSTEOPOROSIS
     Route: 048
     Dates: start: 20011101
  3. ZOLOFT [Concomitant]
     Route: 065
  4. XANAX [Concomitant]
     Route: 065
  5. REMERON [Concomitant]
     Route: 065
  6. PREMPRO [Concomitant]
     Route: 065

REACTIONS (14)
  - ANXIETY [None]
  - ATTENTION DEFICIT/HYPERACTIVITY DISORDER [None]
  - DENTAL CARIES [None]
  - DEPRESSION [None]
  - DRUG DEPENDENCE [None]
  - LOOSE TOOTH [None]
  - PANIC ATTACK [None]
  - PHYSICAL DISABILITY [None]
  - POST-TRAUMATIC STRESS DISORDER [None]
  - POSTMENOPAUSAL HAEMORRHAGE [None]
  - RESORPTION BONE INCREASED [None]
  - TOOTH FRACTURE [None]
  - TOOTH LOSS [None]
  - UTERINE POLYP [None]
